FAERS Safety Report 5318188-7 (Version None)
Quarter: 2007Q2

REPORT INFORMATION
  Report Type: 
  Country: None (occurrence: None)
  Receive Date: 20070507
  Receipt Date: 20070430
  Transmission Date: 20071010
  Serious: Yes (Hospitalization)
  Sender: FDA-Public Use
  Company Number: US-GENENTECH-240794

PATIENT
  Age: 58 Year
  Sex: Female
  Weight: 71 kg

DRUGS (3)
  1. AVASTIN [Suspect]
     Indication: COLON CANCER
     Dosage: UNK, UNK
     Dates: start: 20070410
  2. IRINOTECAN HCL [Concomitant]
     Indication: COLON CANCER
  3. FLUOROURACIL [Concomitant]
     Indication: COLON CANCER

REACTIONS (1)
  - INTESTINAL OBSTRUCTION [None]
